FAERS Safety Report 5177433-1 (Version None)
Quarter: 2006Q4

REPORT INFORMATION
  Report Type: 
  Country: None (occurrence: None)
  Receive Date: 20061206
  Receipt Date: 20061123
  Transmission Date: 20070319
  Serious: Yes (Disabling)
  Sender: FDA-Public Use
  Company Number: 2006-306

PATIENT
  Age: 42 Year
  Sex: Male
  Weight: 75 kg

DRUGS (3)
  1. CIPROFLOXACIN [Suspect]
     Indication: EPIDIDYMITIS
     Dosage: 250MG (2 TABLETS/DAY)
     Dates: start: 20061018, end: 20061025
  2. ATROVASTATIN [Concomitant]
  3. SIMVASTATIN [Concomitant]

REACTIONS (3)
  - BACK PAIN [None]
  - DYSURIA [None]
  - MYALGIA [None]
